FAERS Safety Report 23707280 (Version 1)
Quarter: 2024Q2

REPORT INFORMATION
  Report Type: Spontaneous
  Country: RU (occurrence: RU)
  Receive Date: 20240404
  Receipt Date: 20240404
  Transmission Date: 20240715
  Serious: Yes (Other)
  Sender: FDA-Public Use
  Company Number: RU-SPARK THERAPEUTICS INC.-RU-SPK-24-00006

PATIENT
  Age: 5 Year
  Sex: Female

DRUGS (5)
  1. LUXTURNA [Suspect]
     Active Substance: VORETIGENE NEPARVOVEC-RZYL
     Indication: Hereditary retinal dystrophy
     Dosage: 1.5E11 VG, 0.3 ML, ONCE/SINGLE, SUBRETINAL USE
  2. LUXTURNA [Suspect]
     Active Substance: VORETIGENE NEPARVOVEC-RZYL
     Indication: RPE65 gene mutation
  3. LUXTURNA [Suspect]
     Active Substance: VORETIGENE NEPARVOVEC-RZYL
     Indication: Hereditary retinal dystrophy
  4. LUXTURNA [Suspect]
     Active Substance: VORETIGENE NEPARVOVEC-RZYL
     Indication: RPE65 gene mutation
  5. METHYLPREDNISOLONE [Concomitant]
     Active Substance: METHYLPREDNISOLONE
     Indication: Product used for unknown indication

REACTIONS (3)
  - Episcleritis [Recovered/Resolved]
  - Intraocular pressure increased [Recovered/Resolved]
  - Retinal degeneration [Not Recovered/Not Resolved]
